FAERS Safety Report 20492268 (Version 1)
Quarter: 2022Q1

REPORT INFORMATION
  Report Type: Spontaneous
  Country: CH (occurrence: CH)
  Receive Date: 20220218
  Receipt Date: 20220218
  Transmission Date: 20220423
  Serious: Yes (Other)
  Sender: FDA-Public Use
  Company Number: CH-009507513-2202CHE003076

PATIENT
  Age: 54 Year
  Sex: Male

DRUGS (4)
  1. TEMOZOLOMIDE [Suspect]
     Active Substance: TEMOZOLOMIDE
     Indication: Glioblastoma
     Dosage: UNK
     Route: 048
     Dates: start: 20210816
  2. TEMOZOLOMIDE [Suspect]
     Active Substance: TEMOZOLOMIDE
     Dosage: 1ST CYCLE, 150 MG/M2, TOTAL 280 MG/D
     Route: 048
     Dates: start: 20211118, end: 20211122
  3. TEMOZOLOMIDE [Suspect]
     Active Substance: TEMOZOLOMIDE
     Dosage: 2ND CYCLE, 200 MG/M2, TOTAL 360 MG/D
     Route: 048
     Dates: start: 20211216, end: 20211220
  4. TEMOZOLOMIDE [Suspect]
     Active Substance: TEMOZOLOMIDE
     Dosage: 3RD CYCLE, 200 MG/M2, TOTAL 360 MG/D
     Route: 048
     Dates: start: 20220113, end: 20220117

REACTIONS (12)
  - Glioblastoma [Unknown]
  - Quadrantanopia [Unknown]
  - Dysmetria [Unknown]
  - Dysdiadochokinesis [Unknown]
  - Cerebrospinal fluid retention [Unknown]
  - Cerebral mass effect [Unknown]
  - Brain compression [Unknown]
  - Tumour pseudoprogression [Unknown]
  - Hemiparesis [Unknown]
  - General physical health deterioration [Unknown]
  - Fatigue [Unknown]
  - Nausea [Unknown]

NARRATIVE: CASE EVENT DATE: 20210101
